FAERS Safety Report 7757642-5 (Version None)
Quarter: 2011Q3

REPORT INFORMATION
  Report Type: 
  Country: None (occurrence: None)
  Receive Date: 20110916
  Receipt Date: 20110902
  Transmission Date: 20111222
  Serious: Yes (Other)
  Sender: FDA-Public Use
  Company Number: PHHY2011JP80813

PATIENT
  Sex: Male
  Weight: 70 kg

DRUGS (7)
  1. MAGMITT [Concomitant]
     Dosage: 1 G, UNK
     Route: 048
     Dates: start: 20090706
  2. ADALAT [Concomitant]
     Indication: HYPERTENSION
     Dosage: 20 MG, UNK
     Route: 048
     Dates: start: 20090306
  3. VALSARTAN [Suspect]
     Indication: HYPERTENSION
     Dosage: 40 MG, QD
     Route: 048
     Dates: start: 20081220, end: 20090108
  4. VALSARTAN [Suspect]
     Dosage: 160 MG, UNK
     Route: 048
     Dates: start: 20090123
  5. INDAPAMIDE [Concomitant]
     Indication: HYPERTENSION
     Dosage: 1 MG, UNK
     Route: 048
     Dates: start: 20090206
  6. PURSENNID [Concomitant]
     Dosage: 12 MG, UNK
     Route: 048
     Dates: start: 20091030
  7. VALSARTAN [Suspect]
     Dosage: 80 MG, QD
     Route: 048
     Dates: start: 20090109, end: 20090122

REACTIONS (2)
  - BLOOD UREA INCREASED [None]
  - PROSTATE CANCER [None]
